FAERS Safety Report 7400254-3 (Version None)
Quarter: 2011Q2

REPORT INFORMATION
  Report Type: 
  Country: None (occurrence: None)
  Receive Date: 20110405
  Receipt Date: 20110405
  Transmission Date: 20111010
  Serious: No
  Sender: FDA-Public Use
  Company Number: None

PATIENT
  Age: 30 Year
  Sex: Male
  Weight: 99.7913 kg

DRUGS (1)
  1. OPTIRAY 350 [Suspect]
     Indication: PANCREATITIS
     Dosage: 93 CC'S ONE TIME ONLY IV BOLUS
     Route: 040
     Dates: start: 20110404, end: 20110404

REACTIONS (4)
  - INFREQUENT BOWEL MOVEMENTS [None]
  - CYANOSIS [None]
  - VOMITING PROJECTILE [None]
  - INFUSION RELATED REACTION [None]
